FAERS Safety Report 24304941 (Version 1)
Quarter: 2024Q3

REPORT INFORMATION
  Report Type: Spontaneous
  Country: GB (occurrence: GB)
  Receive Date: 20240911
  Receipt Date: 20240911
  Transmission Date: 20241017
  Serious: Yes (Other)
  Sender: GLAXOSMITHKLINE
  Company Number: None

PATIENT

DRUGS (2)
  1. LAMOTRIGINE [Suspect]
     Active Substance: LAMOTRIGINE
     Indication: Bipolar disorder
     Dosage: 25 MG
     Route: 065
  2. LAMOTRIGINE [Suspect]
     Active Substance: LAMOTRIGINE
     Indication: Epilepsy

REACTIONS (24)
  - Cerebrovascular accident [Unknown]
  - Schizophrenia [Unknown]
  - Aggression [Unknown]
  - Confusional state [Unknown]
  - Muscle spasms [Unknown]
  - Eye movement disorder [Unknown]
  - Dyskinesia [Unknown]
  - Thrombosis [Unknown]
  - Leukaemia [Unknown]
  - Deafness [Unknown]
  - Bipolar I disorder [Unknown]
  - Eyelid disorder [Unknown]
  - Respiratory disorder [Unknown]
  - Dizziness [Unknown]
  - Fatigue [Unknown]
  - Eye pruritus [Unknown]
  - Crying [Unknown]
  - Headache [Unknown]
  - Pruritus [Unknown]
  - Somnolence [Unknown]
  - Nystagmus [Unknown]
  - Loss of personal independence in daily activities [Unknown]
  - Gait disturbance [Unknown]
  - Pain [Unknown]

NARRATIVE: CASE EVENT DATE: 20230501
